FAERS Safety Report 4591415-X (Version None)
Quarter: 2005Q1

REPORT INFORMATION
  Report Type: 
  Country: None (occurrence: None)
  Receive Date: 20050225
  Receipt Date: 20050224
  Transmission Date: 20050727
  Serious: Yes (Death, Hospitalization)
  Sender: FDA-Public Use
  Company Number: ES-BRISTOL-MYERS SQUIBB COMPANY-12875498

PATIENT
  Age: 64 Year
  Sex: Male
  Weight: 61 kg

DRUGS (6)
  1. CARBOPLATIN [Suspect]
     Indication: LUNG NEOPLASM MALIGNANT
     Route: 042
     Dates: start: 20041027, end: 20041027
  2. GEMZAR [Suspect]
     Indication: LUNG NEOPLASM MALIGNANT
     Route: 042
     Dates: start: 20041103, end: 20041103
  3. SEVREDOL [Concomitant]
     Indication: CANCER PAIN
     Dates: start: 20040924
  4. MST [Concomitant]
     Indication: CANCER PAIN
     Dates: start: 20040924
  5. DEXAMETHASONE [Concomitant]
     Indication: CANCER PAIN
     Dates: start: 20040924
  6. SEGURIL [Concomitant]
     Indication: OEDEMA PERIPHERAL
     Dates: start: 20040924

REACTIONS (3)
  - BONE MARROW DEPRESSION [None]
  - PNEUMONIA [None]
  - SEPSIS [None]
